FAERS Safety Report 11681696 (Version 1)
Quarter: 2015Q4

REPORT INFORMATION
  Report Type: Spontaneous
  Country: US (occurrence: US)
  Receive Date: 20151029
  Receipt Date: 20151029
  Transmission Date: 20160304
  Serious: No
  Sender: FDA-Public Use
  Company Number: US-009507513-1510USA007936

PATIENT
  Age: 24 Year
  Sex: Female
  Weight: 99.77 kg

DRUGS (2)
  1. NEXPLANON [Suspect]
     Active Substance: ETONOGESTREL
     Indication: MENSTRUAL CYCLE MANAGEMENT
     Dosage: UNK, EVERY 3 YEARS
     Route: 059
     Dates: start: 20140926
  2. DESMOPRESSIN [Concomitant]
     Active Substance: DESMOPRESSIN
     Dosage: UNK

REACTIONS (2)
  - Product use issue [Unknown]
  - Alopecia [Unknown]

NARRATIVE: CASE EVENT DATE: 20140926
